FAERS Safety Report 7305375-1 (Version None)
Quarter: 2011Q1

REPORT INFORMATION
  Report Type: 
  Country: None (occurrence: None)
  Receive Date: 20110222
  Receipt Date: 20110212
  Transmission Date: 20110831
  Serious: Yes (Hospitalization)
  Sender: FDA-Public Use
  Company Number: PHHY2011US03486

PATIENT
  Sex: Female

DRUGS (2)
  1. CIPRO [Concomitant]
  2. EXJADE [Suspect]
     Indication: SICKLE CELL ANAEMIA
     Dosage: 500 MG, DAILY
     Route: 048

REACTIONS (7)
  - COUGH [None]
  - CHOLELITHIASIS [None]
  - LUNG INFECTION [None]
  - ABDOMINAL PAIN UPPER [None]
  - DYSPNOEA [None]
  - VOMITING [None]
  - HEADACHE [None]
